FAERS Safety Report 24540511 (Version 3)
Quarter: 2025Q3

REPORT INFORMATION
  Report Type: Report from Study
  Country: CA (occurrence: CA)
  Receive Date: 20241023
  Receipt Date: 20250803
  Transmission Date: 20251021
  Serious: Yes (Hospitalization)
  Sender: ALEXION PHARMACEUTICALS
  Company Number: CA-AstraZeneca-CH-00731826A

PATIENT
  Sex: Female

DRUGS (23)
  1. SOLIRIS [Suspect]
     Active Substance: ECULIZUMAB
     Indication: Atypical haemolytic uraemic syndrome
     Dosage: 900 MILLIGRAM, QW
  2. SOLIRIS [Suspect]
     Active Substance: ECULIZUMAB
     Dates: start: 20240410, end: 20240524
  3. SOLIRIS [Suspect]
     Active Substance: ECULIZUMAB
     Dosage: 1200 MILLIGRAM, Q2W
     Dates: start: 20240605
  4. POTASSIUM CHLORIDE [Concomitant]
     Active Substance: POTASSIUM CHLORIDE
  5. POTASSIUM CHLORIDE [Concomitant]
     Active Substance: POTASSIUM CHLORIDE
  6. PREDNISONE [Concomitant]
     Active Substance: PREDNISONE
  7. PREDNISONE [Concomitant]
     Active Substance: PREDNISONE
  8. VITAMIN B1 [Concomitant]
     Active Substance: THIAMINE HYDROCHLORIDE
  9. VITAMIN D [Concomitant]
     Active Substance: VITAMIN D NOS
  10. VITAMIN B12 [Concomitant]
     Active Substance: CYANOCOBALAMIN
  11. VITAMINS [Concomitant]
     Active Substance: VITAMINS
  12. SULFATRIM [Concomitant]
     Active Substance: SULFAMETHOXAZOLE\TRIMETHOPRIM
  13. PENICILLIN V POTASSIUM [Concomitant]
     Active Substance: PENICILLIN V POTASSIUM
     Dosage: 600 MILLIGRAM, BID
  14. MORPHINE [Concomitant]
     Active Substance: MORPHINE
  15. TYLENOL [Concomitant]
     Active Substance: ACETAMINOPHEN
  16. CYCLOSPORINE [Concomitant]
     Active Substance: CYCLOSPORINE
     Route: 065
  17. PANTOPRAZOLE [Concomitant]
     Active Substance: PANTOPRAZOLE
  18. NORFLOXACIN [Concomitant]
     Active Substance: NORFLOXACIN
  19. ALENDRONATE [Concomitant]
     Active Substance: ALENDRONATE SODIUM
     Dosage: 70 MILLIGRAM, QW
  20. EFINACONAZOLE [Concomitant]
     Active Substance: EFINACONAZOLE
  21. HYDROXYCHLOROQUINE SULFATE [Concomitant]
     Active Substance: HYDROXYCHLOROQUINE SULFATE
  22. SYNTHROID [Concomitant]
     Active Substance: LEVOTHYROXINE SODIUM
  23. FUROSEMIDE [Concomitant]
     Active Substance: FUROSEMIDE

REACTIONS (1)
  - Blood glucose fluctuation [Unknown]
